FAERS Safety Report 16077164 (Version 3)
Quarter: 2021Q2

REPORT INFORMATION
  Report Type: Spontaneous
  Country: US (occurrence: US)
  Receive Date: 20190315
  Receipt Date: 20210429
  Transmission Date: 20210716
  Serious: No
  Sender: FDA-Public Use
  Company Number: US-ASTRAZENECA-2019SE27927

PATIENT
  Sex: Female

DRUGS (4)
  1. FARXIGA [Suspect]
     Active Substance: DAPAGLIFLOZIN PROPANEDIOL
     Indication: DIABETES MELLITUS
     Route: 048
  2. ONGLYZA [Suspect]
     Active Substance: SAXAGLIPTIN HYDROCHLORIDE
     Indication: DIABETES MELLITUS
     Route: 048
  3. METFORMIN [Concomitant]
     Active Substance: METFORMIN HYDROCHLORIDE
  4. BYDUREON BCISE [Suspect]
     Active Substance: EXENATIDE
     Indication: TYPE 2 DIABETES MELLITUS
     Route: 058
     Dates: start: 201901

REACTIONS (11)
  - Insomnia [Unknown]
  - Blood glucose increased [Unknown]
  - Injection site mass [Not Recovered/Not Resolved]
  - Myalgia [Unknown]
  - Urinary tract infection [Unknown]
  - Glucose urine present [Unknown]
  - Arthralgia [Unknown]
  - Fungal infection [Unknown]
  - Injection site discomfort [Recovering/Resolving]
  - Abdominal distension [Unknown]
  - Injection site pruritus [Recovering/Resolving]
